FAERS Safety Report 10600184 (Version 1)
Quarter: 2014Q4

REPORT INFORMATION
  Report Type: Spontaneous
  Country: DE (occurrence: DE)
  Receive Date: 20141122
  Receipt Date: 20141122
  Transmission Date: 20150529
  Serious: Yes (Other)
  Sender: FDA-Public Use
  Company Number: DE-ASTRAZENECA-2014SE86548

PATIENT
  Age: 0 Day
  Sex: Male
  Weight: 3.6 kg

DRUGS (12)
  1. QUETIAPINE [Suspect]
     Active Substance: QUETIAPINE
     Indication: ALCOHOLISM
     Route: 015
     Dates: start: 20130920
  2. VENLAFAXINE [Suspect]
     Active Substance: VENLAFAXINE HYDROCHLORIDE
     Indication: BORDERLINE PERSONALITY DISORDER
     Route: 064
     Dates: start: 20130920
  3. NEMEXIN [Concomitant]
     Indication: ALCOHOLISM
     Route: 015
     Dates: start: 20130920, end: 20131119
  4. QUETIAPINE [Suspect]
     Active Substance: QUETIAPINE
     Indication: ALCOHOLISM
     Route: 064
     Dates: start: 20130920, end: 20140623
  5. VENLAFAXINE [Suspect]
     Active Substance: VENLAFAXINE HYDROCHLORIDE
     Indication: ALCOHOLISM
     Route: 064
     Dates: end: 20140623
  6. QUETIAPINE [Suspect]
     Active Substance: QUETIAPINE
     Indication: BORDERLINE PERSONALITY DISORDER
     Route: 064
     Dates: start: 20130920, end: 20140623
  7. VENLAFAXINE [Suspect]
     Active Substance: VENLAFAXINE HYDROCHLORIDE
     Indication: ALCOHOLISM
     Route: 064
     Dates: start: 20130920
  8. VENLAFAXINE [Suspect]
     Active Substance: VENLAFAXINE HYDROCHLORIDE
     Indication: BORDERLINE PERSONALITY DISORDER
     Route: 064
     Dates: end: 20140623
  9. VENLAFAXINE [Suspect]
     Active Substance: VENLAFAXINE HYDROCHLORIDE
     Indication: BORDERLINE PERSONALITY DISORDER
     Route: 015
     Dates: start: 20130920
  10. QUETIAPINE [Suspect]
     Active Substance: QUETIAPINE
     Indication: BORDERLINE PERSONALITY DISORDER
     Route: 015
     Dates: start: 20130920
  11. VENLAFAXINE [Suspect]
     Active Substance: VENLAFAXINE HYDROCHLORIDE
     Indication: ALCOHOLISM
     Route: 015
     Dates: start: 20130920
  12. FOLIO FORTE [Concomitant]
     Active Substance: FOLIC ACID\VITAMINS
     Indication: PROPHYLAXIS OF NEURAL TUBE DEFECT
     Route: 064
     Dates: start: 20130920, end: 20140623

REACTIONS (1)
  - Respiratory disorder neonatal [Recovered/Resolved]

NARRATIVE: CASE EVENT DATE: 20140623
